FAERS Safety Report 5712367-2 (Version None)
Quarter: 2008Q2

REPORT INFORMATION
  Report Type: 
  Country: None (occurrence: None)
  Receive Date: 20080418
  Receipt Date: 20080403
  Transmission Date: 20081010
  Serious: Yes (Other)
  Sender: FDA-Public Use
  Company Number: 2008S1003434

PATIENT
  Age: 21 Year
  Sex: Male

DRUGS (5)
  1. AMNESTEEM [Suspect]
     Indication: ACNE
     Dosage: 40 G; 3 TIMES A DAY; ORAL
     Route: 048
     Dates: start: 20071114
  2. HYDROCODONE BITARTRATE AND ACETAMINOPHEN [Concomitant]
  3. TRIAZOLAM [Concomitant]
  4. IBUPROFEN TABLETS [Concomitant]
  5. KETOCONAZOLE [Concomitant]

REACTIONS (3)
  - LOCAL SWELLING [None]
  - PRURITUS [None]
  - SWELLING FACE [None]
